FAERS Safety Report 9798750 (Version 1)
Quarter: 2014Q1

REPORT INFORMATION
  Report Type: Spontaneous
  Country: US (occurrence: US)
  Receive Date: 20140106
  Receipt Date: 20140106
  Transmission Date: 20141002
  Serious: No
  Sender: FDA-Public Use
  Company Number: US-GILEAD-2010-0030050

PATIENT
  Age: 65 Year
  Sex: Male
  Weight: 86.18 kg

DRUGS (17)
  1. LETAIRIS [Suspect]
     Indication: PULMONARY ARTERIAL HYPERTENSION
     Route: 048
     Dates: start: 20090305
  2. CLARITIN [Concomitant]
  3. LEVAQUIN [Concomitant]
  4. VIAGRA [Concomitant]
  5. SINGULAIR [Concomitant]
  6. PRINIVIL [Concomitant]
  7. PRILOSEC [Concomitant]
  8. COREG [Concomitant]
  9. LASIX [Concomitant]
  10. TYLENOL [Concomitant]
  11. ALBUTEROL [Concomitant]
  12. GLUCOPHAGE [Concomitant]
  13. LOVASTATIN [Concomitant]
  14. VENTOLIN [Concomitant]
  15. ADVAIR [Concomitant]
  16. SPIRIVA [Concomitant]
  17. PREVACID [Concomitant]

REACTIONS (1)
  - Local swelling [Unknown]
